FAERS Safety Report 19970871 (Version 3)
Quarter: 2021Q4

REPORT INFORMATION
  Report Type: Spontaneous
  Country: CH (occurrence: CH)
  Receive Date: 20211019
  Receipt Date: 20211124
  Transmission Date: 20220304
  Serious: Yes (Life-Threatening, Hospitalization, Disabling, Other)
  Sender: FDA-Public Use
  Company Number: NVSC2021CH213044

PATIENT
  Sex: Male
  Weight: 74 kg

DRUGS (5)
  1. SANDOSTATIN LAR DEPOT [Suspect]
     Active Substance: OCTREOTIDE ACETATE
     Indication: Neuroendocrine tumour
     Dosage: 10 MG (CYCLE 1)
     Route: 030
     Dates: start: 202009, end: 202010
  2. SANDOSTATIN LAR DEPOT [Suspect]
     Active Substance: OCTREOTIDE ACETATE
     Dosage: 20 MG (CYCLE 2)
     Route: 030
     Dates: start: 20201016
  3. SANDOSTATIN LAR DEPOT [Suspect]
     Active Substance: OCTREOTIDE ACETATE
     Dosage: 20 MG (CYCLE 3)
     Route: 030
     Dates: start: 20201113
  4. SANDOSTATIN LAR DEPOT [Suspect]
     Active Substance: OCTREOTIDE ACETATE
     Dosage: 30 MG (CYCLE 4)
     Route: 030
     Dates: start: 20201211
  5. SANDOSTATIN LAR DEPOT [Suspect]
     Active Substance: OCTREOTIDE ACETATE
     Dosage: 30 MG (CYCLE 5)
     Route: 030
     Dates: start: 20210108, end: 202102

REACTIONS (14)
  - Weight decreased [Recovered/Resolved with Sequelae]
  - General physical health deterioration [Not Recovered/Not Resolved]
  - Cholelithiasis [Not Recovered/Not Resolved]
  - Weight decreased [Not Recovered/Not Resolved]
  - Pancreatic failure [Unknown]
  - Nocturia [Not Recovered/Not Resolved]
  - Neuroendocrine tumour [Not Recovered/Not Resolved]
  - Malignant neoplasm progression [Not Recovered/Not Resolved]
  - Abdominal pain [Not Recovered/Not Resolved]
  - Diarrhoea [Not Recovered/Not Resolved]
  - Faecal volume increased [Recovered/Resolved with Sequelae]
  - Gastrointestinal sounds abnormal [Unknown]
  - Bowel movement irregularity [Recovered/Resolved with Sequelae]
  - Insomnia [Unknown]

NARRATIVE: CASE EVENT DATE: 20200901
